FAERS Safety Report 18063342 (Version 5)
Quarter: 2024Q1

REPORT INFORMATION
  Report Type: Spontaneous
  Country: US (occurrence: US)
  Receive Date: 20200724
  Receipt Date: 20240322
  Transmission Date: 20240410
  Serious: Yes (Hospitalization, Other)
  Sender: FDA-Public Use
  Company Number: US-TEVA-2020-US-1804931

PATIENT
  Age: 62 Year
  Sex: Male
  Weight: 136.08 kg

DRUGS (11)
  1. VALSARTAN [Suspect]
     Active Substance: VALSARTAN
     Indication: Hypertension
     Route: 048
     Dates: start: 20150427, end: 20150726
  2. HUMULIN R [Concomitant]
     Active Substance: INSULIN HUMAN
     Indication: Diabetes mellitus
     Dosage: DOSAGE TEXT: USE AN INSULIN PUMP EVERY DAY, U-500
     Route: 065
     Dates: start: 1989
  3. TYLENOL [Concomitant]
     Active Substance: ACETAMINOPHEN
     Indication: Pain
  4. LISINOPRIL [Concomitant]
     Active Substance: LISINOPRIL
     Indication: Hypertension
     Route: 048
  5. PRAVASTATIN [Concomitant]
     Active Substance: PRAVASTATIN
     Indication: Blood cholesterol increased
     Route: 048
     Dates: start: 2000, end: 202002
  6. POTASSIUM CHLORIDE [Concomitant]
     Active Substance: POTASSIUM CHLORIDE
     Indication: Product used for unknown indication
     Dosage: DOSAGE TEXT: ONCE A DAY
     Dates: start: 2016
  7. VITAMIN A [Concomitant]
     Active Substance: VITAMIN A
     Indication: Product used for unknown indication
     Dosage: DOSAGE TEXT: 8000MCG/DAY
     Route: 065
     Dates: start: 2016
  8. IRON [Concomitant]
     Active Substance: IRON
     Indication: Anaemia
     Dosage: DOSAGE TEXT: 65MG ONCE A DAY
     Dates: start: 2016
  9. VALSARTAN [Suspect]
     Active Substance: VALSARTAN
     Indication: Hypertension
     Dosage: OHM LABORATORIES
     Route: 048
     Dates: start: 20140812, end: 20141110
  10. VALSARTAN [Suspect]
     Active Substance: VALSARTAN
     Indication: Hypertension
     Dosage: SOLCO
     Route: 048
     Dates: start: 20151228, end: 20160327
  11. VALSARTAN [Suspect]
     Active Substance: VALSARTAN
     Indication: Hypertension
     Dosage: QUALITEST
     Route: 048
     Dates: start: 20160318, end: 20160616

REACTIONS (2)
  - Hepatocellular carcinoma [Recovered/Resolved]
  - Chronic hepatic failure [Not Recovered/Not Resolved]
